FAERS Safety Report 23462063 (Version 1)
Quarter: 2024Q1

REPORT INFORMATION
  Report Type: Spontaneous
  Country: IT (occurrence: IT)
  Receive Date: 20240131
  Receipt Date: 20240131
  Transmission Date: 20240410
  Serious: Yes (Hospitalization)
  Sender: FDA-Public Use
  Company Number: IT-BAXTER-2024BAX010747

PATIENT
  Age: 74 Year
  Sex: Female
  Weight: 48 kg

DRUGS (20)
  1. PREDNISONE [Suspect]
     Active Substance: PREDNISONE
     Indication: Diffuse large B-cell lymphoma stage IV
     Dosage: 100 MILLIGRAM, QD (C1-6, DAY 1-5)
     Route: 048
     Dates: start: 20230830, end: 20231217
  2. CYCLOPHOSPHAMIDE [Suspect]
     Active Substance: CYCLOPHOSPHAMIDE
     Indication: Diffuse large B-cell lymphoma stage IV
     Dosage: 1198.8 MILLIGRAM, Q3W
     Route: 042
     Dates: start: 20230830, end: 20231213
  3. VINCRISTINE [Suspect]
     Active Substance: VINCRISTINE
     Indication: Diffuse large B-cell lymphoma stage IV
     Dosage: 2 MILLIGRAM, Q3W
     Route: 042
     Dates: start: 20230830, end: 20231213
  4. DOXORUBICIN [Suspect]
     Active Substance: DOXORUBICIN
     Indication: Diffuse large B-cell lymphoma stage IV
     Dosage: 79.9 MILLIGRAM, Q3W
     Route: 042
     Dates: start: 20230830, end: 20231213
  5. RITUXIMAB [Suspect]
     Active Substance: RITUXIMAB
     Indication: Diffuse large B-cell lymphoma stage IV
     Dosage: 599.4 MILLIGRAM, Q3W
     Route: 042
     Dates: start: 20230830, end: 20231213
  6. EPCORITAMAB [Suspect]
     Active Substance: EPCORITAMAB
     Indication: Diffuse large B-cell lymphoma stage IV
     Dosage: UNK
     Route: 065
  7. LEVOFLOXACIN [Concomitant]
     Active Substance: LEVOFLOXACIN
     Indication: Prophylaxis
     Dosage: 500 MILLIGRAM, AS NECESSARY
     Route: 065
     Dates: start: 20230901
  8. ACETAMINOPHEN [Concomitant]
     Active Substance: ACETAMINOPHEN
     Indication: Pain prophylaxis
     Dosage: 1000 MILLIGRAM, AS NECESSARY
     Route: 065
     Dates: start: 20230901
  9. OMEPRAZOLE [Concomitant]
     Active Substance: OMEPRAZOLE
     Indication: Gastrointestinal disorder prophylaxis
     Dosage: 20 MILLIGRAM, QD
     Route: 065
     Dates: start: 20230901
  10. CLOREXIN [Concomitant]
     Indication: Antibiotic prophylaxis
     Dosage: 1 TABLESPOON
     Route: 065
     Dates: start: 20230829
  11. ONDANSETRON [Concomitant]
     Active Substance: ONDANSETRON
     Indication: Nausea
     Dosage: 8 MILLIGRAM, AS NECESSARY
     Route: 065
     Dates: start: 20230829
  12. ONDANSETRON [Concomitant]
     Active Substance: ONDANSETRON
     Indication: Prophylaxis of nausea and vomiting
  13. POTASSIUM CHLORIDE [Concomitant]
     Active Substance: POTASSIUM CHLORIDE
     Indication: Prophylaxis
     Dosage: 2 DOSAGE FORM (TABLETS)
     Route: 065
     Dates: start: 20230831
  14. LACTULOSE [Concomitant]
     Active Substance: LACTULOSE
     Indication: Constipation prophylaxis
     Dosage: 1 TABLESPOON, TID
     Route: 065
     Dates: start: 20231025
  15. POTASSIUM CHLORIDE [Concomitant]
     Active Substance: POTASSIUM CHLORIDE
     Indication: Hypokalaemia
     Dosage: 2 DOSAGE FORM, TID (TABLETS)
     Route: 065
     Dates: start: 20231220
  16. SULFAMETHOXAZOLE\TRIMETHOPRIM [Concomitant]
     Active Substance: SULFAMETHOXAZOLE\TRIMETHOPRIM
     Indication: Antibiotic prophylaxis
     Dosage: 960 MILLIGRAM, Q3W
     Route: 065
     Dates: start: 20230929
  17. ACYCLOVIR [Concomitant]
     Active Substance: ACYCLOVIR
     Indication: Antiviral prophylaxis
     Dosage: 400 MILLIGRAM, Q2D
     Route: 065
     Dates: start: 20230829
  18. HYDROCHLOROTHIAZIDE\QUINAPRIL HYDROCHLORIDE [Concomitant]
     Active Substance: HYDROCHLOROTHIAZIDE\QUINAPRIL HYDROCHLORIDE
     Indication: Hypertension
     Dosage: 32.5 MILLIGRAM, QD
     Route: 065
     Dates: start: 2003
  19. ALLOPURINOL [Concomitant]
     Active Substance: ALLOPURINOL
     Indication: Prophylaxis
     Dosage: 300 MILLIGRAM, QD
     Route: 065
     Dates: start: 20230829
  20. NYSTATIN [Concomitant]
     Active Substance: NYSTATIN
     Indication: Antifungal prophylaxis
     Dosage: 1 TABLESPOON, Q4D
     Route: 065
     Dates: start: 20230829

REACTIONS (5)
  - Decreased appetite [Not Recovered/Not Resolved]
  - Weight decreased [Unknown]
  - Hypophagia [Unknown]
  - Nausea [Unknown]
  - Vomiting [Unknown]

NARRATIVE: CASE EVENT DATE: 20231121
